FAERS Safety Report 10749943 (Version 2)
Quarter: 2015Q2

REPORT INFORMATION
  Report Type: Spontaneous
  Country: US (occurrence: US)
  Receive Date: 20150129
  Receipt Date: 20150403
  Transmission Date: 20150821
  Serious: Yes (Hospitalization, Other)
  Sender: FDA-Public Use
  Company Number: US-009507513-1501USA009088

PATIENT
  Age: 80 Year
  Sex: Male

DRUGS (1)
  1. TEMODAR [Suspect]
     Active Substance: TEMOZOLOMIDE
     Indication: BRAIN NEOPLASM MALIGNANT
     Dosage: 140 MG, ONE PER DAY, ON MONDAY TO FRIDAY (5 DAYS/WEEK)
     Route: 048
     Dates: start: 201411

REACTIONS (4)
  - Abasia [Not Recovered/Not Resolved]
  - Pain in extremity [Not Recovered/Not Resolved]
  - Pulmonary embolism [Unknown]
  - Muscular weakness [Not Recovered/Not Resolved]

NARRATIVE: CASE EVENT DATE: 20150108
